FAERS Safety Report 6527263-0 (Version None)
Quarter: 2010Q1

REPORT INFORMATION
  Report Type: 
  Country: None (occurrence: None)
  Receive Date: 20100105
  Receipt Date: 20091231
  Transmission Date: 20100710
  Serious: Yes (Other)
  Sender: FDA-Public Use
  Company Number: FR-PFIZER INC-2009316233

PATIENT
  Age: 39 Year
  Sex: Female

DRUGS (5)
  1. RELPAX [Suspect]
     Dosage: UNK
     Route: 048
     Dates: start: 20090101
  2. LEVOTHYROXINE SODIUM [Concomitant]
     Dosage: UNK
  3. LAROXYL [Concomitant]
     Dosage: UNK
  4. BI-PROFENID [Concomitant]
     Dosage: UNK
  5. NEXIUM [Concomitant]
     Dosage: UNK

REACTIONS (1)
  - DRUG ABUSE [None]
